FAERS Safety Report 6212828-6 (Version None)
Quarter: 2009Q2

REPORT INFORMATION
  Report Type: 
  Country: None (occurrence: None)
  Receive Date: 20090603
  Receipt Date: 20090527
  Transmission Date: 20091009
  Serious: Yes (Other)
  Sender: FDA-Public Use
  Company Number: US-BAYER-200919645NA

PATIENT
  Age: 47 Year
  Sex: Female
  Weight: 79 kg

DRUGS (3)
  1. MAGNEVIST [Suspect]
     Indication: NUCLEAR MAGNETIC RESONANCE IMAGING
     Dosage: TOTAL DAILY DOSE: 15.9 ML  UNIT DOSE: 50 ML
     Route: 042
     Dates: start: 20090430, end: 20090430
  2. PROZAC [Concomitant]
  3. MAXALT [Concomitant]

REACTIONS (1)
  - CHEST PAIN [None]
